FAERS Safety Report 14605268 (Version 6)
Quarter: 2018Q4

REPORT INFORMATION
  Report Type: Report from Study
  Country: DE (occurrence: DE)
  Receive Date: 20180306
  Receipt Date: 20181004
  Transmission Date: 20190204
  Serious: Yes (Hospitalization, Other)
  Sender: FDA-Public Use
  Company Number: DE-PFIZER INC-2018092023

PATIENT
  Sex: Male
  Weight: 60 kg

DRUGS (14)
  1. DEKRISTOL [Concomitant]
     Active Substance: CHOLECALCIFEROL
     Dosage: UNK
  2. TRAMAL LONG [Suspect]
     Active Substance: TRAMADOL
     Dosage: 200 MG, 1X/DAY
     Route: 065
     Dates: start: 20170729, end: 20170810
  3. NOVAMINSULFON [Suspect]
     Active Substance: METAMIZOLE
     Dosage: 120 GTT, 1X/DAY
     Route: 048
     Dates: start: 20170729, end: 20170810
  4. MORPHINE HYDROCHLORIDE [Suspect]
     Active Substance: MORPHINE HYDROCHLORIDE
     Dosage: 4 ML, AS NEEDED (IN ADDITION IF REQUIRED)
     Route: 042
     Dates: start: 20170729
  5. HUMIRA [Suspect]
     Active Substance: ADALIMUMAB
     Indication: PSORIASIS
     Dosage: 40 MG, MONTHLY
     Route: 058
     Dates: start: 201707, end: 201802
  6. HUMIRA [Suspect]
     Active Substance: ADALIMUMAB
     Dosage: 40 MG, MONTHLY
     Route: 058
     Dates: start: 2017, end: 20170722
  7. HUMIRA [Suspect]
     Active Substance: ADALIMUMAB
     Dosage: 160 MG, UNK
     Route: 058
     Dates: start: 20180906, end: 20180906
  8. IBUPROFEN. [Concomitant]
     Active Substance: IBUPROFEN
     Dosage: UNK, AS NEEDED
     Dates: start: 2014
  9. HUMIRA [Suspect]
     Active Substance: ADALIMUMAB
     Indication: PSORIASIS
     Dosage: UNK
     Route: 065
  10. HUMIRA [Suspect]
     Active Substance: ADALIMUMAB
     Indication: HIDRADENITIS
     Dosage: 40 MG, MONTHLY
     Route: 058
     Dates: start: 20160412, end: 201705
  11. ZOLPIDEM [Suspect]
     Active Substance: ZOLPIDEM\ZOLPIDEM TARTRATE
     Dosage: 5 MG, UNK
     Route: 065
     Dates: start: 20170729, end: 20170810
  12. PANTOPRAZOLE [Suspect]
     Active Substance: PANTOPRAZOLE
     Dosage: 40 MG, 1X/DAY
     Route: 065
     Dates: start: 20170729, end: 20170810
  13. MORPHINE HYDROCHLORIDE [Suspect]
     Active Substance: MORPHINE HYDROCHLORIDE
     Dosage: 6 ML, 1 PER HOUR (Q1HR)
     Route: 042
     Dates: start: 20170729, end: 20170810
  14. TRAMAL [Suspect]
     Active Substance: TRAMADOL
     Dosage: 30 DF, 3X/DAY
     Route: 065
     Dates: start: 20170729, end: 20170810

REACTIONS (15)
  - Psoriasis [Not Recovered/Not Resolved]
  - Dandruff [Recovered/Resolved]
  - Pneumothorax [Recovered/Resolved]
  - Condition aggravated [Recovering/Resolving]
  - Psoriasis [Recovered/Resolved]
  - Pneumothorax spontaneous [Recovered/Resolved]
  - Scab [Recovered/Resolved]
  - Rash erythematous [Recovered/Resolved]
  - Pneumothorax spontaneous [Recovered/Resolved]
  - Abscess [Recovering/Resolving]
  - Rash pruritic [Recovered/Resolved]
  - Condition aggravated [Not Recovered/Not Resolved]
  - Hidradenitis [Not Recovered/Not Resolved]
  - Rash [Recovered/Resolved]
  - Drug specific antibody present [Unknown]

NARRATIVE: CASE EVENT DATE: 201605
